FAERS Safety Report 12390891 (Version 2)
Quarter: 2016Q2

REPORT INFORMATION
  Report Type: Spontaneous
  Country: FR (occurrence: FR)
  Receive Date: 20160520
  Receipt Date: 20160621
  Transmission Date: 20160815
  Serious: Yes (Hospitalization, Other)
  Sender: FDA-Public Use
  Company Number: FR-ELI_LILLY_AND_COMPANY-FR201605005650

PATIENT
  Age: 54 Year
  Sex: Female
  Weight: 95 kg

DRUGS (6)
  1. LANTUS [Concomitant]
     Active Substance: INSULIN GLARGINE
     Dosage: 50 UNK, UNK
  2. ODRIK [Concomitant]
     Active Substance: TRANDOLAPRIL
     Dosage: 1 DF, QD
  3. METFORMINE [Concomitant]
     Active Substance: METFORMIN HYDROCHLORIDE
     Dosage: 1 DF, TID
  4. TRULICITY [Suspect]
     Active Substance: DULAGLUTIDE
     Indication: INSULIN RESISTANCE
     Dosage: 1.5 MG, WEEKLY (1/W)
     Route: 058
     Dates: start: 20160322, end: 20160405
  5. NOVORAPID [Concomitant]
     Active Substance: INSULIN ASPART
     Dosage: 30 U, TID
  6. LIPANTHYL [Concomitant]
     Active Substance: FENOFIBRATE
     Dosage: 1 DF, QD

REACTIONS (3)
  - Gastrointestinal disorder [Unknown]
  - Tachycardia [Unknown]
  - Hypertension [Recovered/Resolved]

NARRATIVE: CASE EVENT DATE: 20160401
